FAERS Safety Report 16761493 (Version 4)
Quarter: 2021Q1

REPORT INFORMATION
  Report Type: Spontaneous
  Country: US (occurrence: US)
  Receive Date: 20190830
  Receipt Date: 20210113
  Transmission Date: 20210419
  Serious: Yes (Other)
  Sender: FDA-Public Use
  Company Number: US-GILEAD-2019-0425671

PATIENT
  Age: 40 Year
  Sex: Male
  Weight: 105.67 kg

DRUGS (58)
  1. TRUVADA [Suspect]
     Active Substance: EMTRICITABINE\TENOFOVIR DISOPROXIL FUMARATE
     Dosage: UNK
     Route: 065
     Dates: start: 201510, end: 201604
  2. MIRTAZAPINE. [Suspect]
     Active Substance: MIRTAZAPINE
     Indication: PRODUCT USED FOR UNKNOWN INDICATION
     Route: 065
  3. PIFELTRO [Concomitant]
     Active Substance: DORAVIRINE
  4. MUPIROCIN. [Concomitant]
     Active Substance: MUPIROCIN
  5. CHANTIX [Concomitant]
     Active Substance: VARENICLINE TARTRATE
  6. PEG 3350 + ELECTROLYTES [Concomitant]
  7. SULFAMETH/TRIMETH [Concomitant]
     Active Substance: SULFAMETHOXAZOLE\TRIMETHOPRIM
  8. ALLEGRA [Concomitant]
     Active Substance: FEXOFENADINE HYDROCHLORIDE
  9. KALETRA [Suspect]
     Active Substance: LOPINAVIR\RITONAVIR
     Indication: HIV INFECTION
     Route: 065
  10. TRAZODONE [Concomitant]
     Active Substance: TRAZODONE HYDROCHLORIDE
  11. CLOBETASOL [Concomitant]
     Active Substance: CLOBETASOL
  12. PROAIR HFA [Concomitant]
     Active Substance: ALBUTEROL SULFATE
  13. CYCLOBENZAPRINE. [Concomitant]
     Active Substance: CYCLOBENZAPRINE
  14. DOXEPIN [Concomitant]
     Active Substance: DOXEPIN
  15. KETOCONAZOLE. [Concomitant]
     Active Substance: KETOCONAZOLE
  16. HYDROXYZINE HYDROCHLORIDE. [Concomitant]
     Active Substance: HYDROXYZINE HYDROCHLORIDE
  17. CLINDAMYCIN. [Concomitant]
     Active Substance: CLINDAMYCIN
  18. SIMETHICONE (DIMETHICONE) [Concomitant]
     Active Substance: DIMETHICONE
  19. ATRIPLA [Suspect]
     Active Substance: EFAVIRENZ\EMTRICITABINE\TENOFOVIR DISOPROXIL FUMARATE
     Indication: HIV INFECTION
     Dosage: UNK
     Route: 048
     Dates: start: 201003, end: 201510
  20. GENVOYA [Concomitant]
     Active Substance: COBICISTAT\ELVITEGRAVIR\EMTRICITABINE\TENOFOVIR ALAFENAMIDE FUMARATE
  21. FLUTICASONE. [Concomitant]
     Active Substance: FLUTICASONE
  22. ACYCLOVIR [ACICLOVIR] [Concomitant]
     Active Substance: ACYCLOVIR
  23. OXYCODONE AND ACETAMINOPHEN [Concomitant]
     Active Substance: ACETAMINOPHEN\OXYCODONE HYDROCHLORIDE
  24. ATARAX [ALPRAZOLAM] [Concomitant]
     Active Substance: ALPRAZOLAM
  25. ZOVIRAX [Concomitant]
     Active Substance: ACYCLOVIR
  26. FLEXERIL [Concomitant]
     Active Substance: CYCLOBENZAPRINE HYDROCHLORIDE
  27. TRUVADA [Suspect]
     Active Substance: EMTRICITABINE\TENOFOVIR DISOPROXIL FUMARATE
     Indication: HIV INFECTION
     Dosage: UNK
     Route: 048
     Dates: start: 20051105, end: 2010
  28. BENZONATATE. [Concomitant]
     Active Substance: BENZONATATE
  29. ERYTHROMYCIN. [Concomitant]
     Active Substance: ERYTHROMYCIN
  30. PRILOSEC [Concomitant]
     Active Substance: OMEPRAZOLE MAGNESIUM
  31. FAMCICLOVIR. [Concomitant]
     Active Substance: FAMCICLOVIR
  32. VANCOMYCINE [VANCOMYCIN] [Concomitant]
     Active Substance: VANCOMYCIN
  33. ACETAMINOPHEN;HYDROCODONE [Concomitant]
     Active Substance: ACETAMINOPHEN\HYDROCODONE
  34. CIPROFLOXACIN. [Concomitant]
     Active Substance: CIPROFLOXACIN
  35. CICLOPIROX. [Concomitant]
     Active Substance: CICLOPIROX
  36. PERCOCET [Concomitant]
     Active Substance: ACETAMINOPHEN\OXYCODONE HYDROCHLORIDE
  37. CEFTRIAXONE. [Concomitant]
     Active Substance: CEFTRIAXONE
  38. DOVONEX [Concomitant]
     Active Substance: CALCIPOTRIENE
  39. DESCOVY [Concomitant]
     Active Substance: EMTRICITABINE\TENOFOVIR ALAFENAMIDE FUMARATE
  40. NICOTINE. [Concomitant]
     Active Substance: NICOTINE
  41. BACTROBAN [Concomitant]
     Active Substance: MUPIROCIN\MUPIROCIN CALCIUM
  42. PENICILLIN NOS [Concomitant]
     Active Substance: PENICILLIN
  43. ECONAZOLE NITRATE. [Concomitant]
     Active Substance: ECONAZOLE NITRATE
  44. REMERON [Concomitant]
     Active Substance: MIRTAZAPINE
  45. TIVICAY [Concomitant]
     Active Substance: DOLUTEGRAVIR SODIUM
  46. IBUPROFEN. [Concomitant]
     Active Substance: IBUPROFEN
  47. VIAGRA [Concomitant]
     Active Substance: SILDENAFIL CITRATE
  48. DIAZEPAM. [Concomitant]
     Active Substance: DIAZEPAM
  49. RANITIDINE. [Concomitant]
     Active Substance: RANITIDINE
  50. FLUNISOLIDE. [Concomitant]
     Active Substance: FLUNISOLIDE
  51. ALBUTEROL [SALBUTAMOL] [Concomitant]
     Active Substance: ALBUTEROL
  52. ZANTAC [Concomitant]
     Active Substance: RANITIDINE HYDROCHLORIDE
  53. CALCIPOTRIENE. [Concomitant]
     Active Substance: CALCIPOTRIENE
  54. OMEPRAZOLE. [Concomitant]
     Active Substance: OMEPRAZOLE
  55. CEPHALEXIN [CEFALEXIN] [Concomitant]
     Active Substance: CEPHALEXIN
  56. LAMIVUDINE. [Concomitant]
     Active Substance: LAMIVUDINE
  57. COLACE [Concomitant]
     Active Substance: DOCUSATE SODIUM
  58. DESOWEN [Concomitant]
     Active Substance: DESONIDE

REACTIONS (13)
  - Osteopenia [Not Recovered/Not Resolved]
  - Weight increased [Unknown]
  - Emotional distress [Not Recovered/Not Resolved]
  - Economic problem [Not Recovered/Not Resolved]
  - Depression [Not Recovered/Not Resolved]
  - Chronic kidney disease [Not Recovered/Not Resolved]
  - Multiple injuries [Unknown]
  - Anhedonia [Not Recovered/Not Resolved]
  - Lipodystrophy acquired [Not Recovered/Not Resolved]
  - Myalgia [Unknown]
  - Pain [Not Recovered/Not Resolved]
  - Anxiety [Not Recovered/Not Resolved]
  - Hallucination, auditory [Not Recovered/Not Resolved]

NARRATIVE: CASE EVENT DATE: 201603
